FAERS Safety Report 5317998-X (Version None)
Quarter: 2007Q2

REPORT INFORMATION
  Report Type: 
  Country: None (occurrence: None)
  Receive Date: 20070507
  Receipt Date: 20070504
  Transmission Date: 20071010
  Serious: Yes (Other)
  Sender: FDA-Public Use
  Company Number: IT-BRISTOL-MYERS SQUIBB COMPANY-13769369

PATIENT

DRUGS (4)
  1. HYDROXYUREA [Suspect]
     Indication: SKIN ULCER
     Route: 048
  2. FOLIC ACID [Suspect]
  3. VITAMIN E [Suspect]
  4. ARGININE BUTYRATE [Suspect]
     Indication: SKIN ULCER
     Route: 042

REACTIONS (4)
  - DISEASE RECURRENCE [None]
  - DRUG INEFFECTIVE [None]
  - SERUM FERRITIN INCREASED [None]
  - SKIN ULCER [None]
